FAERS Safety Report 9288982 (Version 1)
Quarter: 2013Q2

REPORT INFORMATION
  Report Type: Report from Study
  Country: BR (occurrence: BR)
  Receive Date: 20130514
  Receipt Date: 20130514
  Transmission Date: 20140414
  Serious: Yes (Other)
  Sender: FDA-Public Use
  Company Number: PHHY2013BR047662

PATIENT
  Sex: Female

DRUGS (1)
  1. EXELON PATCH [Suspect]
     Dosage: 13.3 MG, UNK
     Route: 062

REACTIONS (2)
  - Dementia Alzheimer^s type [Unknown]
  - Memory impairment [Unknown]
